FAERS Safety Report 7407589-9 (Version None)
Quarter: 2011Q2

REPORT INFORMATION
  Report Type: 
  Country: None (occurrence: None)
  Receive Date: 20110412
  Receipt Date: 20110328
  Transmission Date: 20111010
  Serious: Yes (Other)
  Sender: FDA-Public Use
  Company Number: US-CELGENEUS-163-21880-11033212

PATIENT
  Sex: Female
  Weight: 50.8 kg

DRUGS (6)
  1. VITAMIN D [Concomitant]
     Route: 065
  2. REVLIMID [Suspect]
     Indication: MULTIPLE MYELOMA
     Dosage: 25 MILLIGRAM
     Route: 048
     Dates: start: 20110314
  3. DEXAMETHASONE [Concomitant]
     Route: 065
  4. LISINOPRIL [Concomitant]
     Route: 065
  5. CALCIUM [Concomitant]
     Route: 065
  6. SYNTHROID [Concomitant]
     Route: 065

REACTIONS (2)
  - OEDEMA PERIPHERAL [None]
  - HYPERKERATOSIS [None]
